FAERS Safety Report 24963652 (Version 1)
Quarter: 2025Q1

REPORT INFORMATION
  Report Type: Spontaneous
  Country: FR (occurrence: FR)
  Receive Date: 20250213
  Receipt Date: 20250213
  Transmission Date: 20250408
  Serious: Yes (Hospitalization, Other)
  Sender: CHEPLAPHARM
  Company Number: None

PATIENT
  Age: 25 Year
  Sex: Male
  Weight: 84 kg

DRUGS (9)
  1. OLANZAPINE [Suspect]
     Active Substance: OLANZAPINE
     Dosage: 1 TABLET AT BEDTIME?DAILY DOSE: 15 MILLIGRAM
     Route: 048
     Dates: end: 20240802
  2. ACAMPROSATE CALCIUM [Suspect]
     Active Substance: ACAMPROSATE CALCIUM
     Dosage: 2 TABLETS IN THE MORNING, 2 TABLETS AT NOON, 2 TABLETS IN THE EVENING ?DAILY DOSE: 6 DOSAGE FORM
     Route: 048
     Dates: end: 20240802
  3. ALCOHOL [Suspect]
     Active Substance: ALCOHOL
     Dates: end: 20230802
  4. CANNABIS SATIVA SUBSP. INDICA TOP [Suspect]
     Active Substance: CANNABIS SATIVA SUBSP. INDICA TOP
     Dates: end: 20240802
  5. COCAINE [Suspect]
     Active Substance: COCAINE
     Dates: start: 20240801, end: 20240802
  6. CYAMEMAZINE [Suspect]
     Active Substance: CYAMEMAZINE
     Dosage: 25 MG: 1 TABLET IN THE MORNING, 1 TABLET AT SNACK TIME , 1 TABLET IN THE EVENING , 2 TABLETS AT B...
     Route: 048
     Dates: end: 20240802
  7. DIAZEPAM [Suspect]
     Active Substance: DIAZEPAM
     Dosage: 1/2 TABLET IN THE MORNING, 1/2 TABLET IN THE EVENING ?DAILY DOSE: 5 MILLIGRAM
     Route: 048
     Dates: end: 20240802
  8. MIRTAZAPINE [Suspect]
     Active Substance: MIRTAZAPINE
     Dosage: 15MG: 3 TABLETS AT BEDTIME?DAILY DOSE: 45 MILLIGRAM
     Route: 048
     Dates: end: 20240802
  9. VALPROATE SODIUM [Suspect]
     Active Substance: VALPROATE SODIUM
     Dosage: 500 MG: 1 TABLET IN THE MORNING, 1 TABLET IN THE EVENING?DAILY DOSE: 1250 MILLIGRAM
     Route: 048
     Dates: end: 20240802

REACTIONS (6)
  - Respiratory distress [Recovered/Resolved]
  - Coma [Recovered/Resolved]
  - Hypotension [Recovered/Resolved]
  - Tachycardia [Recovered/Resolved]
  - Drug abuse [Recovered/Resolved]
  - Pneumococcal infection [Unknown]

NARRATIVE: CASE EVENT DATE: 20240801
